FAERS Safety Report 4964867-0 (Version None)
Quarter: 2006Q2

REPORT INFORMATION
  Report Type: 
  Country: None (occurrence: None)
  Receive Date: 20060403
  Receipt Date: 20060320
  Transmission Date: 20061013
  Serious: Yes (Disabling)
  Sender: FDA-Public Use
  Company Number: HQWYE182307MAR06

PATIENT
  Age: 58 Year
  Sex: Male

DRUGS (5)
  1. EFFEXOR XR [Suspect]
     Indication: DEPRESSION
     Dosage: SEE IMAGE
     Route: 048
     Dates: start: 20060201, end: 20060201
  2. EFFEXOR XR [Suspect]
     Indication: DEPRESSION
     Dosage: SEE IMAGE
     Route: 048
     Dates: start: 20060201, end: 20060201
  3. CELEXA [Suspect]
     Indication: DEPRESSION
     Dates: end: 20060101
  4. UNSPECIFIED PAIN MEDICATION (UNSPECIFIED PAIN MEDICATION) [Concomitant]
  5. IMOVANE (ZOPICLONE) [Concomitant]

REACTIONS (2)
  - BLINDNESS UNILATERAL [None]
  - CONDITION AGGRAVATED [None]
